FAERS Safety Report 13065527 (Version 1)
Quarter: 2016Q4

REPORT INFORMATION
  Report Type: Report from Study
  Country: US (occurrence: US)
  Receive Date: 20161227
  Receipt Date: 20161227
  Transmission Date: 20170207
  Serious: Yes (Death, Hospitalization, Other)
  Sender: FDA-Public Use
  Company Number: US-BAYER-2016-157495

PATIENT
  Age: 58 Year
  Sex: Female
  Weight: 54.88 kg

DRUGS (7)
  1. ADEMPAS [Suspect]
     Active Substance: RIOCIGUAT
     Indication: PULMONARY HYPERTENSION
     Dosage: 2.5 MG, TID
     Route: 048
  2. OPSUMIT [Concomitant]
     Active Substance: MACITENTAN
     Dosage: UNK
  3. VELETRI [Concomitant]
     Active Substance: EPOPROSTENOL
     Dosage: UNK, OW
  4. ADEMPAS [Suspect]
     Active Substance: RIOCIGUAT
     Indication: PULMONARY HYPERTENSION
     Dosage: UNK
     Dates: start: 20140512
  5. ADEMPAS [Suspect]
     Active Substance: RIOCIGUAT
     Indication: PULMONARY HYPERTENSION
     Dosage: 2.5 MG, TID
     Route: 048
  6. ADEMPAS [Suspect]
     Active Substance: RIOCIGUAT
     Indication: PULMONARY HYPERTENSION
     Dosage: 2.5 MG, TID
     Route: 048
  7. VELETRI [Concomitant]
     Active Substance: EPOPROSTENOL
     Dosage: UNK

REACTIONS (11)
  - Fluid retention [None]
  - Chest injury [Unknown]
  - Rebound effect [Unknown]
  - Head injury [Unknown]
  - Oedema [Unknown]
  - Death [Fatal]
  - Mobility decreased [Unknown]
  - Stress fracture [Unknown]
  - Fall [Unknown]
  - Limb injury [Unknown]
  - Nausea [Not Recovered/Not Resolved]

NARRATIVE: CASE EVENT DATE: 20161213
